FAERS Safety Report 6279221-1 (Version None)
Quarter: 2009Q3

REPORT INFORMATION
  Report Type: 
  Country: None (occurrence: None)
  Receive Date: 20090723
  Receipt Date: 20080822
  Transmission Date: 20100115
  Serious: No
  Sender: FDA-Public Use
  Company Number: US-AMGEN-KDL304228

PATIENT
  Sex: Female
  Weight: 56.8 kg

DRUGS (4)
  1. PROCRIT [Suspect]
     Indication: ANAEMIA
     Route: 058
     Dates: start: 20040101
  2. FLOMAX [Concomitant]
     Route: 048
  3. SIMVASTATIN [Concomitant]
     Route: 048
  4. LUMIGAN [Concomitant]

REACTIONS (5)
  - ADVERSE EVENT [None]
  - BLOOD CALCIUM ABNORMAL [None]
  - CYSTITIS [None]
  - JOINT SPRAIN [None]
  - OSTEOPOROSIS [None]
